FAERS Safety Report 13639235 (Version 1)
Quarter: 2017Q2

REPORT INFORMATION
  Report Type: Spontaneous
  Country: US (occurrence: US)
  Receive Date: 20170609
  Receipt Date: 20170609
  Transmission Date: 20170830
  Serious: No
  Sender: FDA-Public Use
  Company Number: US-ROCHE-677654

PATIENT
  Age: 37 Year
  Sex: Male
  Weight: 73.6 kg

DRUGS (7)
  1. KLONOPIN [Suspect]
     Active Substance: CLONAZEPAM
     Route: 065
     Dates: start: 20091110, end: 20091110
  2. KLONOPIN [Suspect]
     Active Substance: CLONAZEPAM
     Indication: ANXIETY
     Route: 048
  3. KLONOPIN [Suspect]
     Active Substance: CLONAZEPAM
     Route: 048
  4. CLONAZEPAM. [Suspect]
     Active Substance: CLONAZEPAM
     Indication: ANXIETY
     Dosage: CLONAZEPAM WAFERS, OTHER MANUFACTURER : PAR
     Route: 048
  5. CLONAZEPAM. [Suspect]
     Active Substance: CLONAZEPAM
     Route: 048
  6. CLONAZEPAM. [Suspect]
     Active Substance: CLONAZEPAM
     Route: 048
  7. KLONOPIN [Suspect]
     Active Substance: CLONAZEPAM
     Indication: ANXIETY
     Dosage: FORM: WAFERS
     Route: 065

REACTIONS (2)
  - Apathy [Recovered/Resolved]
  - Depression [Unknown]

NARRATIVE: CASE EVENT DATE: 200905
